FAERS Safety Report 9216135 (Version 1)
Quarter: 2013Q2

REPORT INFORMATION
  Report Type: Spontaneous
  Country: GB (occurrence: GB)
  Receive Date: 20130408
  Receipt Date: 20130408
  Transmission Date: 20140414
  Serious: Yes (Hospitalization)
  Sender: FDA-Public Use
  Company Number: GB-JNJFOC-20130318719

PATIENT
  Age: 42 Year
  Sex: Male

DRUGS (4)
  1. SINUTAB [Suspect]
     Indication: SINUSITIS
     Route: 048
     Dates: start: 20130315, end: 20130318
  2. ASPIRIN [Concomitant]
     Indication: CONGESTIVE CARDIOMYOPATHY
     Route: 065
  3. BISOPROLOL [Concomitant]
     Indication: CONGESTIVE CARDIOMYOPATHY
     Route: 065
  4. RAMIPRIL [Concomitant]
     Indication: CONGESTIVE CARDIOMYOPATHY
     Route: 065

REACTIONS (2)
  - Atrial fibrillation [Not Recovered/Not Resolved]
  - Heart rate irregular [Unknown]
